FAERS Safety Report 15592394 (Version 1)
Quarter: 2018Q4

REPORT INFORMATION
  Report Type: Spontaneous
  Country: US (occurrence: US)
  Receive Date: 20181106
  Receipt Date: 20181106
  Transmission Date: 20190205
  Serious: No
  Sender: FDA-Public Use
  Company Number: US-PFIZER INC-2018443934

PATIENT
  Age: 66 Year
  Sex: Female

DRUGS (4)
  1. LYRICA [Suspect]
     Active Substance: PREGABALIN
     Dosage: 150 MG, 2X/DAY (TAKE 3 CAPSULES BY MOUTH)
     Route: 048
  2. HYDROMORPHONE [Concomitant]
     Active Substance: HYDROMORPHONE
     Indication: PAIN
     Dosage: 4 MG, AS NEEDED (3 TIMES A DAY AS NEEDED )
     Route: 048
  3. LYRICA [Suspect]
     Active Substance: PREGABALIN
     Indication: MUSCULOSKELETAL PAIN
     Dosage: 75 MG, 2X/DAY (2 CAPSULE BY MOUTH TWICE A DAY)
     Route: 048
     Dates: start: 2012
  4. LYRICA [Suspect]
     Active Substance: PREGABALIN
     Indication: PHANTOM PAIN
     Dosage: 75 MG, 2X/DAY (1 CAPSULE)
     Route: 048

REACTIONS (3)
  - Drug ineffective [Unknown]
  - Product use in unapproved indication [Unknown]
  - Weight decreased [Unknown]

NARRATIVE: CASE EVENT DATE: 2012
